FAERS Safety Report 18615089 (Version 8)
Quarter: 2025Q1

REPORT INFORMATION
  Report Type: Report from Study
  Country: US (occurrence: US)
  Receive Date: 20201214
  Receipt Date: 20250116
  Transmission Date: 20250409
  Serious: No
  Sender: TAKEDA
  Company Number: US-TAKEDA-2020TUS056297

PATIENT
  Sex: Female
  Weight: 105 kg

DRUGS (62)
  1. HUMAN IMMUNOGLOBULIN G [Suspect]
     Active Substance: HUMAN IMMUNOGLOBULIN G
     Indication: Hypergammaglobulinaemia
     Dosage: 50 GRAM, Q6WEEKS
     Dates: start: 20170922
  2. HUMAN IMMUNOGLOBULIN G [Suspect]
     Active Substance: HUMAN IMMUNOGLOBULIN G
     Indication: Immune system disorder
     Dosage: 50 GRAM, Q6WEEKS
     Dates: start: 20171031
  3. HUMAN IMMUNOGLOBULIN G [Suspect]
     Active Substance: HUMAN IMMUNOGLOBULIN G
     Dosage: 50 GRAM, Q6WEEKS
     Dates: start: 20210917
  4. XYZAL [Concomitant]
     Active Substance: LEVOCETIRIZINE DIHYDROCHLORIDE
  5. ACETAMINOPHEN [Concomitant]
     Active Substance: ACETAMINOPHEN
  6. DIPHENHYDRAMINE [Concomitant]
     Active Substance: DIPHENHYDRAMINE
  7. HEPARIN [Concomitant]
     Active Substance: HEPARIN SODIUM
  8. SODIUM CHLORIDE [Concomitant]
     Active Substance: SODIUM CHLORIDE
  9. Lmx [Concomitant]
  10. ONDANSETRON [Concomitant]
     Active Substance: ONDANSETRON
  11. EPINEPHRINE [Concomitant]
     Active Substance: EPINEPHRINE
  12. SOLU-MEDROL [Concomitant]
     Active Substance: METHYLPREDNISOLONE SODIUM SUCCINATE
  13. ZOFRAN [Concomitant]
     Active Substance: ONDANSETRON HYDROCHLORIDE
  14. OMEPRAZOLE [Concomitant]
     Active Substance: OMEPRAZOLE
  15. TRAMADOL [Concomitant]
     Active Substance: TRAMADOL
  16. TIZANIDINE [Concomitant]
     Active Substance: TIZANIDINE
  17. LOSARTAN [Concomitant]
     Active Substance: LOSARTAN
  18. LOVASTATIN [Concomitant]
     Active Substance: LOVASTATIN
  19. DIGOXIN [Concomitant]
     Active Substance: DIGOXIN
  20. ASPIRIN [Concomitant]
     Active Substance: ASPIRIN
  21. HYDROCHLOROTHIAZIDE\TRIAMTERENE [Concomitant]
     Active Substance: HYDROCHLOROTHIAZIDE\TRIAMTERENE
  22. TRAVATAN Z [Concomitant]
     Active Substance: TRAVOPROST
  23. BACTROBAN [Concomitant]
     Active Substance: MUPIROCIN CALCIUM
  24. CALCIUM CARBONATE [Concomitant]
     Active Substance: CALCIUM CARBONATE
  25. METFORMIN HYDROCHLORIDE [Concomitant]
     Active Substance: METFORMIN HYDROCHLORIDE
  26. METOCLOPRAMIDE [Concomitant]
     Active Substance: METOCLOPRAMIDE
  27. ALBUTEROL [Concomitant]
     Active Substance: ALBUTEROL
  28. BETAMETHASONE\CLOTRIMAZOLE [Concomitant]
     Active Substance: BETAMETHASONE\CLOTRIMAZOLE
  29. ACETAMINOPHEN\HYDROCODONE [Concomitant]
     Active Substance: ACETAMINOPHEN\HYDROCODONE
  30. CETIRIZINE [Concomitant]
     Active Substance: CETIRIZINE HYDROCHLORIDE
  31. RANITIDINE [Concomitant]
     Active Substance: RANITIDINE
  32. COENZYME Q10 [Concomitant]
     Active Substance: DIETARY SUPPLEMENT\UBIDECARENONE
  33. MELOXICAM [Concomitant]
     Active Substance: MELOXICAM
  34. FEXOFENADINE [Concomitant]
     Active Substance: FEXOFENADINE HYDROCHLORIDE
  35. POLYETHYLENE GLYCOL [Concomitant]
     Active Substance: POLYETHYLENE GLYCOL
  36. CYANOCOBALAMIN [Concomitant]
     Active Substance: CYANOCOBALAMIN
  37. PREDNISOLONE [Concomitant]
     Active Substance: PREDNISOLONE
  38. AMLODIPINE/ATORVASTATIN KRKA [Concomitant]
  39. LINZESS [Concomitant]
     Active Substance: LINACLOTIDE
  40. ROSUVASTATIN [Concomitant]
     Active Substance: ROSUVASTATIN
  41. CLONIDINE [Concomitant]
     Active Substance: CLONIDINE
  42. NORVASC [Concomitant]
     Active Substance: AMLODIPINE BESYLATE
  43. HYDROCHLOROTHIAZIDE\TRIAMTERENE [Concomitant]
     Active Substance: HYDROCHLOROTHIAZIDE\TRIAMTERENE
  44. FLUTICASONE [Concomitant]
     Active Substance: FLUTICASONE
  45. RANITIDINE [Concomitant]
     Active Substance: RANITIDINE
  46. IBUPROFEN [Concomitant]
     Active Substance: IBUPROFEN
  47. SODIUM CHLORIDE [Concomitant]
     Active Substance: SODIUM CHLORIDE
  48. ZINC [Concomitant]
     Active Substance: ZINC
  49. VITAMIN D3 [Concomitant]
     Active Substance: CHOLECALCIFEROL
  50. CLARITIN-D NOS [Concomitant]
     Active Substance: LORATADINE\PSEUDOEPHEDRINE SULFATE
     Indication: Product used for unknown indication
  51. CARISOPRODOL [Concomitant]
     Active Substance: CARISOPRODOL
  52. CLONIDINE HYDROCHLORIDE [Concomitant]
     Active Substance: CLONIDINE HYDROCHLORIDE
  53. LOSARTAN POTASSIUM [Concomitant]
     Active Substance: LOSARTAN POTASSIUM
  54. ROSUVASTATIN CALCIUM [Concomitant]
     Active Substance: ROSUVASTATIN CALCIUM
  55. TRAMADOL HCL [Concomitant]
     Active Substance: TRAMADOL HYDROCHLORIDE
  56. SINGULAIR [Concomitant]
     Active Substance: MONTELUKAST SODIUM
  57. DIPHENHYDRAMINE HYDROCHLORIDE [Concomitant]
     Active Substance: DIPHENHYDRAMINE HYDROCHLORIDE
  58. METANX [Concomitant]
     Active Substance: LEVOMEFOLATE CALCIUM\METHYLCOBALAMIN\PYRIDOXAL PHOSPHATE ANHYDROUS
  59. GABAPENTIN [Concomitant]
     Active Substance: GABAPENTIN
  60. CVS COENZYME Q 10 [Concomitant]
  61. CLARITIN-D NOS [Concomitant]
     Active Substance: LORATADINE\PSEUDOEPHEDRINE SULFATE
  62. CYCLOBENZAPRINE HYDROCHLORIDE [Concomitant]
     Active Substance: CYCLOBENZAPRINE HYDROCHLORIDE

REACTIONS (10)
  - Urinary tract infection [Recovered/Resolved]
  - Pollakiuria [Unknown]
  - Paranasal sinus hypersecretion [Unknown]
  - Upper respiratory tract infection [Unknown]
  - Eye pain [Not Recovered/Not Resolved]
  - Arthralgia [Unknown]
  - Back pain [Recovering/Resolving]
  - Cough [Unknown]
  - Headache [Unknown]
  - Rhinorrhoea [Unknown]
